FAERS Safety Report 23813598 (Version 3)
Quarter: 2024Q2

REPORT INFORMATION
  Report Type: Spontaneous
  Country: US (occurrence: US)
  Receive Date: 20240503
  Receipt Date: 20240605
  Transmission Date: 20240716
  Serious: No
  Sender: FDA-Public Use
  Company Number: US-PFIZER INC-PV202400054084

PATIENT
  Age: 10 Month
  Sex: Male

DRUGS (4)
  1. GENOTROPIN [Suspect]
     Active Substance: SOMATROPIN
     Indication: Growth hormone deficiency
     Dosage: 0.1 MG, TWICE A DAY 7 DAYS/WEEK
  2. GENOTROPIN [Suspect]
     Active Substance: SOMATROPIN
     Indication: Hypopituitarism
     Dosage: 0.2 MG, DAILY
  3. GENOTROPIN [Suspect]
     Active Substance: SOMATROPIN
     Indication: Blood glucose abnormal
  4. NGENLA [Concomitant]
     Active Substance: SOMATROGON-GHLA
     Dosage: 0.14 MG, WEEKLY

REACTIONS (3)
  - Off label use [Unknown]
  - Drug dose omission by device [Unknown]
  - Device malfunction [Unknown]
